FAERS Safety Report 10535398 (Version 2)
Quarter: 2015Q1

REPORT INFORMATION
  Report Type: Spontaneous
  Country: FR (occurrence: FR)
  Receive Date: 20141022
  Receipt Date: 20150114
  Transmission Date: 20150720
  Serious: Yes (Other)
  Sender: FDA-Public Use
  Company Number: FR-GLAXOSMITHKLINE-FR2014GSK005130

PATIENT
  Age: 64 Year
  Sex: Female

DRUGS (7)
  1. IMMUNOSUPPRESSIVE [Concomitant]
     Active Substance: UNSPECIFIED INGREDIENT
  2. ZYLORIC [Suspect]
     Active Substance: ALLOPURINOL
     Dosage: 300 MG, QD
     Route: 048
     Dates: start: 20081102, end: 20081116
  3. BACTRIM [Suspect]
     Active Substance: SULFAMETHOXAZOLE\TRIMETHOPRIM
     Dosage: 800 MG, BID
     Route: 048
     Dates: start: 20081102, end: 20081116
  4. INSULIN [Concomitant]
     Active Substance: INSULIN NOS
  5. RCOP [Concomitant]
     Indication: LYMPHOMA
     Dosage: UNK
  6. RCOPADEM [Concomitant]
     Indication: LYMPHOMA
     Dosage: UNK
  7. ZELITREX [Suspect]
     Active Substance: VALACYCLOVIR HYDROCHLORIDE
     Dosage: 300 MG, QD
     Route: 048
     Dates: start: 20081102, end: 20081116

REACTIONS (1)
  - Palpable purpura [Recovered/Resolved]

NARRATIVE: CASE EVENT DATE: 20081108
